FAERS Safety Report 4822788-8 (Version None)
Quarter: 2005Q4

REPORT INFORMATION
  Report Type: 
  Country: None (occurrence: None)
  Receive Date: 20051104
  Receipt Date: 20051019
  Transmission Date: 20060501
  Serious: Yes (Hospitalization)
  Sender: FDA-Public Use
  Company Number: DSA_27337_2005

PATIENT
  Age: 93 Year
  Sex: Female

DRUGS (8)
  1. DILTIAZEM HYDROCHLORIDE [Suspect]
     Indication: CARDIAC DISORDER
     Dosage: 200 MG Q DAY PO
     Route: 048
  2. ^MEPROMIZINE^ [MEPRONIZINE] [Suspect]
     Dosage: DF Q DAY PO
     Route: 048
  3. LEVOTHYROX [Concomitant]
  4. DEBRIDAT [Concomitant]
  5. FORLAX [Concomitant]
  6. XANAX [Suspect]
     Dosage: 1 MG Q DAY PO
     Route: 048
  7. EFFEXOR [Suspect]
     Dosage: 37.5 MG Q DAY PO
     Route: 048
     Dates: start: 20030801
  8. TRINITRINE [Suspect]
     Dosage: DF PRN PO
     Route: 048

REACTIONS (8)
  - ATRIOVENTRICULAR BLOCK FIRST DEGREE [None]
  - BLOOD POTASSIUM INCREASED [None]
  - FALL [None]
  - GENERAL PHYSICAL HEALTH DETERIORATION [None]
  - HEAD INJURY [None]
  - HYPONATRAEMIA [None]
  - NODAL RHYTHM [None]
  - SUBDURAL HAEMORRHAGE [None]
